FAERS Safety Report 4615297-2 (Version None)
Quarter: 2005Q1

REPORT INFORMATION
  Report Type: 
  Country: None (occurrence: None)
  Receive Date: 20050322
  Receipt Date: 20050308
  Transmission Date: 20050727
  Serious: Yes (Hospitalization)
  Sender: FDA-Public Use
  Company Number: US-BRISTOL-MYERS SQUIBB COMPANY-12893319

PATIENT
  Age: 69 Year
  Sex: Male

DRUGS (12)
  1. METOPROLOL TARTRATE [Suspect]
  2. ANGIOMAX [Concomitant]
     Dosage: 75 MG FOLLOWED BY AN INFUSION RATE OF 190 MG/HOUR=550 MG TOTAL DOSE
     Route: 042
     Dates: start: 20040902, end: 20040902
  3. PRINIVIL [Concomitant]
     Route: 048
  4. COREG [Concomitant]
     Route: 048
  5. MIRAPEX [Concomitant]
  6. SINEMET [Concomitant]
  7. VICODIN [Concomitant]
  8. AMANTADINE HCL [Concomitant]
  9. DOCUSATE SODIUM [Concomitant]
  10. LOVASTATIN [Concomitant]
  11. SELEGILINE HCL [Concomitant]
  12. WARFARIN [Concomitant]

REACTIONS (14)
  - AORTIC VALVE INCOMPETENCE [None]
  - AORTIC VALVE SCLEROSIS [None]
  - CHEST DISCOMFORT [None]
  - DILATATION ATRIAL [None]
  - DIZZINESS [None]
  - ECHOCARDIOGRAM ABNORMAL [None]
  - EJECTION FRACTION DECREASED [None]
  - ELECTROCARDIOGRAM T WAVE INVERSION [None]
  - MITRAL VALVE INCOMPETENCE [None]
  - POST PROCEDURAL COMPLICATION [None]
  - TRICUSPID VALVE INCOMPETENCE [None]
  - VENTRICULAR HYPERTROPHY [None]
  - VENTRICULAR TACHYCARDIA [None]
  - VERTIGO [None]
